FAERS Safety Report 19111847 (Version 1)
Quarter: 2021Q2

REPORT INFORMATION
  Report Type: Spontaneous
  Country: US (occurrence: US)
  Receive Date: 20210408
  Receipt Date: 20210408
  Transmission Date: 20210717
  Serious: Yes (Disabling)
  Sender: FDA-Public Use
  Company Number: US-PURDUE PHARMA-USA-2018-0144343

PATIENT
  Sex: Male
  Weight: 106.58 kg

DRUGS (1)
  1. OXYCONTIN [Suspect]
     Active Substance: OXYCODONE HYDROCHLORIDE
     Indication: PAIN
     Dosage: UNK
     Route: 048

REACTIONS (3)
  - Bedridden [Unknown]
  - Unevaluable event [Unknown]
  - Drug intolerance [Unknown]
